FAERS Safety Report 14649603 (Version 1)
Quarter: 2018Q1

REPORT INFORMATION
  Report Type: Report from Study
  Country: BR (occurrence: BR)
  Receive Date: 20180316
  Receipt Date: 20180316
  Transmission Date: 20180509
  Serious: Yes (Death, Life-Threatening, Hospitalization, Other)
  Sender: FDA-Public Use
  Company Number: BR-BRISTOL-MYERS SQUIBB COMPANY-BMS-2018-024403

PATIENT
  Age: 72 Year
  Sex: Male

DRUGS (1)
  1. NIVOLUMAB [Suspect]
     Active Substance: NIVOLUMAB
     Indication: PRODUCT USED FOR UNKNOWN INDICATION
     Dosage: 3 MG/KG, Q2WK
     Route: 065

REACTIONS (8)
  - Haemorrhagic stroke [Unknown]
  - Abdominal pain [Unknown]
  - Musculoskeletal pain [Unknown]
  - Peritoneal disorder [Unknown]
  - Hypometabolism [Unknown]
  - Neoplasm [Unknown]
  - Inflammation [Unknown]
  - Cardiovascular disorder [Fatal]
